FAERS Safety Report 22275790 (Version 1)
Quarter: 2023Q2

REPORT INFORMATION
  Report Type: Spontaneous
  Country: US (occurrence: US)
  Receive Date: 20230502
  Receipt Date: 20230502
  Transmission Date: 20230722
  Serious: No
  Sender: FDA-Public Use
  Company Number: US-SA-SAC20230427000808

PATIENT
  Age: 41 Year
  Sex: Female

DRUGS (9)
  1. DUPIXENT [Suspect]
     Active Substance: DUPILUMAB
     Indication: Dermatitis atopic
     Dosage: 1 DF, QOW
     Route: 058
     Dates: start: 20220504
  2. PREBIOTICS NOS [Concomitant]
  3. PROGESTERONE [Concomitant]
     Active Substance: PROGESTERONE
  4. BUSPIRONE [Concomitant]
     Active Substance: BUSPIRONE HYDROCHLORIDE
  5. ZOLOFT [Concomitant]
     Active Substance: SERTRALINE HYDROCHLORIDE
  6. LAMOTRIGINE [Concomitant]
     Active Substance: LAMOTRIGINE
  7. CLONAZEPAM [Concomitant]
     Active Substance: CLONAZEPAM
  8. VITAMIN D3 [Concomitant]
     Active Substance: CHOLECALCIFEROL
  9. OMEGA-3 FATTY ACIDS [Concomitant]
     Active Substance: OMEGA-3 FATTY ACIDS

REACTIONS (1)
  - Rash [Unknown]
